FAERS Safety Report 18832833 (Version 1)
Quarter: 2021Q1

REPORT INFORMATION
  Report Type: Report from Study
  Country: US (occurrence: US)
  Receive Date: 20210201
  Receipt Date: 20210201
  Transmission Date: 20210419
  Serious: Yes (Hospitalization)
  Sender: FDA-Public Use
  Company Number: US-SEATTLE GENETICS-2020SGN05571

PATIENT
  Sex: Female

DRUGS (2)
  1. TUCATINIB [Suspect]
     Active Substance: TUCATINIB
     Indication: PRODUCT USED FOR UNKNOWN INDICATION
     Dosage: 50 MG, UNK
  2. CAPECITABINE. [Suspect]
     Active Substance: CAPECITABINE
     Dosage: UNK

REACTIONS (3)
  - Dry skin [Unknown]
  - Hospitalisation [Unknown]
  - Unevaluable event [Unknown]
